FAERS Safety Report 5037513-8 (Version None)
Quarter: 2006Q2

REPORT INFORMATION
  Report Type: 
  Country: None (occurrence: None)
  Receive Date: 20060609
  Receipt Date: 20050503
  Transmission Date: 20061013
  Serious: Yes (Hospitalization)
  Sender: FDA-Public Use
  Company Number: 2005-01524

PATIENT
  Age: 32 Year
  Sex: Female

DRUGS (2)
  1. TRI-NORINYL 21-DAY [Suspect]
     Indication: CONTRACEPTION
     Dosage: 1 TABLET, DAILY, ORAL
     Route: 048
     Dates: start: 19990101, end: 20050201
  2. TYLENOL COLD (PARACETAMOL, CHLORPHENAMINE MALEATE, DEXTROMETHORPHAN HY [Concomitant]

REACTIONS (10)
  - BALANCE DISORDER [None]
  - BRAIN DAMAGE [None]
  - COGNITIVE DISORDER [None]
  - CONVULSION [None]
  - DISTURBANCE IN ATTENTION [None]
  - HYPOAESTHESIA [None]
  - INNER EAR DISORDER [None]
  - ISCHAEMIC STROKE [None]
  - MEMORY IMPAIRMENT [None]
  - MIGRAINE [None]
